FAERS Safety Report 5983120-X (Version None)
Quarter: 2008Q4

REPORT INFORMATION
  Report Type: 
  Country: None (occurrence: None)
  Receive Date: 20081208
  Receipt Date: 20081128
  Transmission Date: 20090506
  Serious: Yes (Death, Hospitalization)
  Sender: FDA-Public Use
  Company Number: GB-BAUSCH-2008BL005025

PATIENT
  Age: 18 Year
  Sex: Female

DRUGS (6)
  1. GENTAMICIN [Suspect]
     Indication: LOWER RESPIRATORY TRACT INFECTION
  2. ACYCLOVIR [Suspect]
     Indication: MENINGITIS
  3. CEFOTAXIME SODIUM [Suspect]
     Indication: MENINGITIS
  4. PHENYTOIN [Suspect]
     Indication: CONVULSION
  5. TAZOCIN [Suspect]
     Indication: LOWER RESPIRATORY TRACT INFECTION
  6. PREDNISOLONE [Concomitant]
     Indication: DRUG USE FOR UNKNOWN INDICATION

REACTIONS (3)
  - MULTI-ORGAN FAILURE [None]
  - SEPSIS [None]
  - TOXIC EPIDERMAL NECROLYSIS [None]
